FAERS Safety Report 19229755 (Version 1)
Quarter: 2021Q2

REPORT INFORMATION
  Report Type: Spontaneous
  Country: US (occurrence: US)
  Receive Date: 20210507
  Receipt Date: 20210507
  Transmission Date: 20210717
  Serious: No
  Sender: FDA-Public Use
  Company Number: US-SA-2021SA148142

PATIENT

DRUGS (1)
  1. DUPIXENT [Suspect]
     Active Substance: DUPILUMAB
     Dates: start: 201905

REACTIONS (5)
  - Dacryostenosis acquired [Unknown]
  - Lacrimation decreased [Unknown]
  - Skin irritation [Unknown]
  - Conjunctivitis [Unknown]
  - Dry skin [Unknown]

NARRATIVE: CASE EVENT DATE: 2021
